FAERS Safety Report 14291420 (Version 1)
Quarter: 2017Q4

REPORT INFORMATION
  Report Type: Spontaneous
  Country: US (occurrence: US)
  Receive Date: 20171215
  Receipt Date: 20171215
  Transmission Date: 20180321
  Serious: Yes (Other)
  Sender: FDA-Public Use
  Company Number: US-BAYER-2017-243080

PATIENT
  Age: 30 Year
  Sex: Female

DRUGS (1)
  1. MIRENA [Suspect]
     Active Substance: LEVONORGESTREL
     Dosage: 20 MCG/24HR, CONT
     Route: 015
     Dates: start: 20110928, end: 20120612

REACTIONS (7)
  - Headache [None]
  - Vision blurred [None]
  - Papilloedema [None]
  - Idiopathic intracranial hypertension [None]
  - Visual impairment [None]
  - Dizziness [None]
  - Vitreous floaters [None]

NARRATIVE: CASE EVENT DATE: 201309
